FAERS Safety Report 4541921-9 (Version None)
Quarter: 2004Q4

REPORT INFORMATION
  Report Type: 
  Country: None (occurrence: None)
  Receive Date: 20041229
  Receipt Date: 20041229
  Transmission Date: 20050328
  Serious: Yes (Hospitalization)
  Sender: FDA-Public Use
  Company Number: None

PATIENT
  Age: 47 Year
  Sex: Male
  Weight: 140 kg

DRUGS (1)
  1. QUETIAPINE  300MG  ASTRA ZENECA [Suspect]
     Indication: SCHIZOPHRENIA
     Dosage: 1500MG  BEDTIME ORAL
     Route: 048
     Dates: start: 20040721, end: 20041130

REACTIONS (4)
  - ARTERIOVENOUS FISTULA, ACQUIRED [None]
  - ELECTROCARDIOGRAM ST SEGMENT ELEVATION [None]
  - ELECTROCARDIOGRAM T WAVE INVERSION [None]
  - OVERDOSE [None]
